FAERS Safety Report 6701820-0 (Version None)
Quarter: 2010Q2

REPORT INFORMATION
  Report Type: 
  Country: None (occurrence: None)
  Receive Date: 20100429
  Receipt Date: 20100420
  Transmission Date: 20101027
  Serious: Yes (Other)
  Sender: FDA-Public Use
  Company Number: JP-MPIJNJ-2010-02322

PATIENT

DRUGS (18)
  1. VELCADE [Suspect]
     Indication: MULTIPLE MYELOMA
     Dosage: 1.93 MG, UNK
     Route: 042
     Dates: start: 20090806, end: 20090907
  2. VELCADE [Suspect]
     Dosage: 1.94 MG, UNK
     Route: 042
     Dates: start: 20090925, end: 20091026
  3. VELCADE [Suspect]
     Dosage: 1.95 MG, UNK
     Route: 042
     Dates: start: 20091118, end: 20091120
  4. VELCADE [Suspect]
     Dosage: 1.81 MG, UNK
     Route: 042
     Dates: start: 20091124, end: 20091217
  5. VELCADE [Suspect]
     Dosage: 1.95 MG, UNK
     Route: 042
     Dates: start: 20100114, end: 20100215
  6. VELCADE [Suspect]
     Dosage: 1.81 UNK, UNK
     Route: 042
     Dates: start: 20100312, end: 20100409
  7. PREDNISONE [Suspect]
     Indication: MULTIPLE MYELOMA
     Dosage: 85 MG, UNK
     Route: 048
     Dates: start: 20090806, end: 20100315
  8. MELPHALAN HYDROCHLORIDE [Suspect]
     Indication: MULTIPLE MYELOMA
     Dosage: 12 MG, UNK
     Route: 048
     Dates: start: 20090805, end: 20091231
  9. OXYCONTIN [Concomitant]
     Indication: COMPRESSION FRACTURE
     Dosage: 80 MG, UNK
     Route: 048
  10. CELECOXIB [Concomitant]
     Indication: COMPRESSION FRACTURE
     Dosage: 200 MG, UNK
     Route: 048
     Dates: start: 20100108
  11. MAGLAX [Concomitant]
     Indication: CONSTIPATION
     Dosage: 1980 MG, UNK
     Route: 048
  12. ISONIAZID [Concomitant]
     Indication: INFECTION PROPHYLAXIS
     Dosage: 2000 MG, UNK
     Route: 048
     Dates: start: 20090809
  13. BACTRAMIN [Concomitant]
     Indication: INFECTION PROPHYLAXIS
     Dosage: 1 DF, UNK
     Route: 048
     Dates: start: 20091217
  14. MYSLEE [Concomitant]
     Indication: INSOMNIA
     Dosage: 10 MG, UNK
     Route: 048
     Dates: start: 20091016
  15. DEPAS [Concomitant]
     Indication: PROPHYLAXIS
     Dosage: 0.5 MG, UNK
     Route: 048
     Dates: start: 20091102
  16. ALLELOCK [Concomitant]
     Indication: RASH
     Dosage: 6 MG, UNK
     Route: 048
     Dates: start: 20100329
  17. RINDERON-VG [Concomitant]
     Indication: RASH
     Dosage: UNK
     Route: 061
     Dates: start: 20100409
  18. FERROMIA                           /00023516/ [Concomitant]
     Indication: IRON DEFICIENCY ANAEMIA
     Dosage: 50 MG, UNK
     Route: 048
     Dates: start: 20100315, end: 20100318

REACTIONS (1)
  - GASTRIC CANCER [None]
